FAERS Safety Report 10891038 (Version 2)
Quarter: 2015Q1

REPORT INFORMATION
  Report Type: Report from Study
  Country: DE (occurrence: DE)
  Receive Date: 20150305
  Receipt Date: 20150311
  Transmission Date: 20150721
  Serious: Yes (Death)
  Sender: FDA-Public Use
  Company Number: DE-ROCHE-1548549

PATIENT
  Sex: Female
  Weight: 75 kg

DRUGS (3)
  1. RANIBIZUMAB [Suspect]
     Active Substance: RANIBIZUMAB
     Indication: AGE-RELATED MACULAR DEGENERATION
     Route: 050
     Dates: start: 20130814
  2. RANIBIZUMAB [Suspect]
     Active Substance: RANIBIZUMAB
     Dosage: LAST DOSE PRIOR TO SAE
     Route: 050
     Dates: start: 20140922, end: 20140922
  3. LATANOPROST EYE DROPS [Concomitant]
     Active Substance: LATANOPROST
     Route: 065
     Dates: start: 20101201

REACTIONS (1)
  - Death [Fatal]
